FAERS Safety Report 8493703-3 (Version None)
Quarter: 2012Q3

REPORT INFORMATION
  Report Type: 
  Country: None (occurrence: None)
  Receive Date: 20120706
  Receipt Date: 20120705
  Transmission Date: 20120928
  Serious: Yes (Death, Life-Threatening)
  Sender: FDA-Public Use
  Company Number: US-ROXANE LABORATORIES, INC.-2012-RO-01519RO

PATIENT
  Age: 25 Year
  Sex: Male

DRUGS (1)
  1. MORPHINE [Suspect]

REACTIONS (2)
  - ASPHYXIA [None]
  - TOXICITY TO VARIOUS AGENTS [None]
